FAERS Safety Report 16668495 (Version 1)
Quarter: 2019Q3

REPORT INFORMATION
  Report Type: Spontaneous
  Country: US (occurrence: US)
  Receive Date: 20190805
  Receipt Date: 20190805
  Transmission Date: 20191004
  Serious: Yes (Life-Threatening, Hospitalization)
  Sender: FDA-Public Use
  Company Number: US-AMERICAN REGENT INC-20191530

PATIENT
  Age: 65 Year
  Sex: Male
  Weight: 73 kg

DRUGS (6)
  1. VENOFER [Suspect]
     Active Substance: IRON SUCROSE
     Indication: IRON DEFICIENCY
     Dosage: FIRST DOSE (100 MG,Q TREATMENT
     Dates: start: 20190427
  2. HECTOROL [Concomitant]
     Active Substance: DOXERCALCIFEROL
     Dosage: FIFTH DOSE (1 MG)
     Dates: start: 20190427
  3. MIRCERA [Suspect]
     Active Substance: METHOXY POLYETHYLENE GLYCOL-EPOETIN BETA
     Indication: NEPHROGENIC ANAEMIA
     Dosage: FIRST DOSE (75 MCG 1 IN 2 WK)
     Dates: start: 20190427
  4. HECTOROL [Concomitant]
     Active Substance: DOXERCALCIFEROL
     Indication: PRODUCT USED FOR UNKNOWN INDICATION
     Dosage: 1 MG
  5. VENOFER [Suspect]
     Active Substance: IRON SUCROSE
     Dosage: SEVENTH DOSE (100 MG)
     Dates: start: 20190511
  6. MIRCERA [Suspect]
     Active Substance: METHOXY POLYETHYLENE GLYCOL-EPOETIN BETA
     Dosage: SECOND DOSE (100 MCG)
     Dates: start: 20190511, end: 2019

REACTIONS (1)
  - Anaphylactic reaction [Recovered/Resolved]

NARRATIVE: CASE EVENT DATE: 20190511
